FAERS Safety Report 8143391-0 (Version None)
Quarter: 2012Q1

REPORT INFORMATION
  Report Type: 
  Country: None (occurrence: None)
  Receive Date: 20120217
  Receipt Date: 20120206
  Transmission Date: 20120608
  Serious: Yes (Hospitalization)
  Sender: FDA-Public Use
  Company Number: US-BAYER-2011-075153

PATIENT
  Age: 39 Year
  Sex: Female
  Weight: 96.145 kg

DRUGS (3)
  1. YAZ [Suspect]
     Indication: ORAL CONTRACEPTION
     Dosage: UNK
     Dates: start: 20070101, end: 20090811
  2. ALBUTEROL [Concomitant]
     Dosage: UNK UNK, PRN
     Dates: start: 19940101
  3. SINGULAIR [Concomitant]
     Dosage: UNK, PRN
     Dates: start: 19940101

REACTIONS (3)
  - GALLBLADDER INJURY [None]
  - CHOLELITHIASIS [None]
  - INJURY [None]
